FAERS Safety Report 24603403 (Version 1)
Quarter: 2024Q4

REPORT INFORMATION
  Report Type: Spontaneous
  Country: AT (occurrence: AT)
  Receive Date: 20241111
  Receipt Date: 20241111
  Transmission Date: 20250115
  Serious: Yes (Other)
  Sender: BAYER HEALTHCARE PHARMACEUTICALS INC.
  Company Number: AT-BAYER-2024A159679

PATIENT
  Sex: Female

DRUGS (7)
  1. ADEMPAS [Suspect]
     Active Substance: RIOCIGUAT
     Dosage: 2.5 MG, TID
  2. TREPROSTINIL [Concomitant]
     Active Substance: TREPROSTINIL
     Dosage: 47 NG/KG/MIN
  3. TREPROSTINIL [Concomitant]
     Active Substance: TREPROSTINIL
     Dosage: 200 NG/KG
  4. LASIX [Concomitant]
     Active Substance: FUROSEMIDE
     Dosage: 40 MG
  5. LASIX [Concomitant]
     Active Substance: FUROSEMIDE
     Dosage: 120 MG
  6. SPIRONOLACTONE [Concomitant]
     Active Substance: SPIRONOLACTONE
  7. PHENPROCOUMON [Concomitant]
     Active Substance: PHENPROCOUMON

REACTIONS (10)
  - General physical health deterioration [None]
  - Knee arthroplasty [None]
  - N-terminal prohormone brain natriuretic peptide increased [None]
  - N-terminal prohormone brain natriuretic peptide increased [None]
  - Dyspnoea [None]
  - Oedema peripheral [None]
  - Pulmonary arterial pressure increased [None]
  - Pulmonary arterial pressure increased [None]
  - Pulmonary arterial wedge pressure increased [None]
  - Pulmonary vascular resistance abnormality [None]

NARRATIVE: CASE EVENT DATE: 20171201
